FAERS Safety Report 13317562 (Version 1)
Quarter: 2017Q1

REPORT INFORMATION
  Report Type: Spontaneous
  Country: JP (occurrence: JP)
  Receive Date: 20170310
  Receipt Date: 20170310
  Transmission Date: 20170428
  Serious: Yes (Hospitalization)
  Sender: FDA-Public Use
  Company Number: JP-PFIZER INC-2017102232

PATIENT
  Age: 64 Year
  Sex: Female

DRUGS (8)
  1. PREGABALIN. [Suspect]
     Active Substance: PREGABALIN
     Indication: SPINAL OSTEOARTHRITIS
  2. DAISAIKOTO /07976201/ [Suspect]
     Active Substance: HERBALS
     Indication: SPINAL OSTEOARTHRITIS
  3. DAISAIKOTO /07976201/ [Suspect]
     Active Substance: HERBALS
     Indication: PAIN
  4. LOXOPROFEN [Suspect]
     Active Substance: LOXOPROFEN
     Indication: SPINAL OSTEOARTHRITIS
  5. LOXOPROFEN [Suspect]
     Active Substance: LOXOPROFEN
     Indication: PAIN
  6. TOKAKUJOKITO /08062301/ [Suspect]
     Active Substance: HERBALS
     Indication: PAIN
  7. TOKAKUJOKITO /08062301/ [Suspect]
     Active Substance: HERBALS
     Indication: SPINAL OSTEOARTHRITIS
  8. PREGABALIN. [Suspect]
     Active Substance: PREGABALIN
     Indication: PAIN

REACTIONS (6)
  - Lung disorder [Recovered/Resolved]
  - Cough [None]
  - Liver disorder [None]
  - Drug ineffective [None]
  - Inflammatory marker increased [None]
  - Chest X-ray abnormal [None]
